FAERS Safety Report 24209576 (Version 1)
Quarter: 2024Q3

REPORT INFORMATION
  Report Type: Spontaneous
  Country: NL (occurrence: NL)
  Receive Date: 20240814
  Receipt Date: 20240814
  Transmission Date: 20241017
  Serious: Yes (Other)
  Sender: MYLAN
  Company Number: NL-MYLANLABS-2024M1073856

PATIENT
  Age: 52 Year
  Sex: Female

DRUGS (23)
  1. LENALIDOMIDE [Suspect]
     Active Substance: LENALIDOMIDE
     Indication: Plasma cell myeloma
     Dosage: UNK UNK, CYCLE; FOUR 28-DAY TREATMENT CYCLES OF INDUCTION THERAPY; DAYS 1-21
     Route: 048
  2. LENALIDOMIDE [Suspect]
     Active Substance: LENALIDOMIDE
     Dosage: UNK, AS CONSOLIDATION THERAPY
     Route: 065
  3. LEVOCETIRIZINE [Suspect]
     Active Substance: LEVOCETIRIZINE
     Indication: Anaphylactic shock
     Dosage: 10 MILLIGRAM, PREMEDICATION (ON DAYS OF DESENSITIZATION)
     Route: 065
  4. LEVOCETIRIZINE [Suspect]
     Active Substance: LEVOCETIRIZINE
     Indication: Prophylaxis
  5. MONTELUKAST [Suspect]
     Active Substance: MONTELUKAST SODIUM
     Indication: Anaphylactic shock
     Dosage: 10 MILLIGRAM, PREMEDICATION (ON DAYS OF DESENSITIZATION)
     Route: 065
  6. MONTELUKAST [Suspect]
     Active Substance: MONTELUKAST SODIUM
     Indication: Prophylaxis
  7. POMALIDOMIDE [Suspect]
     Active Substance: POMALIDOMIDE
     Indication: Plasma cell myeloma
     Dosage: UNK, WITH ISATUXIMAB AND DEXAMETHASONE
     Route: 065
  8. ISATUXIMAB [Suspect]
     Active Substance: ISATUXIMAB
     Indication: Plasma cell myeloma
     Dosage: UNK, CYCLE; FOUR 28-DAY TREATMENT CYCLES..
     Route: 065
  9. ISATUXIMAB [Suspect]
     Active Substance: ISATUXIMAB
     Dosage: UNK, CYCLE; A NEW TREATMENT CYCLE WITH POMALIDOMIDE AND DEXAMETHASONE
     Route: 065
  10. ISATUXIMAB [Suspect]
     Active Substance: ISATUXIMAB
     Indication: Plasma cell myeloma
     Dosage: UNK, AS CONSOLIDATION THERAPY; INFUSION
     Route: 042
  11. ISATUXIMAB [Suspect]
     Active Substance: ISATUXIMAB
     Indication: Plasma cell myeloma
     Dosage: UNK, DESENSITIZATION PROCEDURES..
     Route: 042
  12. DEXAMETHASONE [Suspect]
     Active Substance: DEXAMETHASONE
     Indication: Plasma cell myeloma
     Dosage: 40 MILLIGRAM, CYCLE; FOUR 28-DAY TREATMENT CYCLES OF INDUCTION THERAPY; (DAYS 1, 8, 15, AND 22)
     Route: 065
  13. DEXAMETHASONE [Suspect]
     Active Substance: DEXAMETHASONE
     Indication: Anaphylactic shock
     Dosage: UNK, AS CONSOLIDATION THERAPY
     Route: 065
  14. DEXAMETHASONE [Suspect]
     Active Substance: DEXAMETHASONE
     Indication: Prophylaxis
     Dosage: UNK, CYCLE; NEW TREATMENT CYCLE WITH ISATUXIMAB AND POMALIDOMIDE
     Route: 065
  15. DEXAMETHASONE [Suspect]
     Active Substance: DEXAMETHASONE
     Dosage: 40 MILLIGRAM, PREMEDICATION (ON DAYS OF DESENSITIZATION)
     Route: 065
  16. CARFILZOMIB [Suspect]
     Active Substance: CARFILZOMIB
     Indication: Plasma cell myeloma
     Dosage: UNK, CYCLE;  FOUR 28-DAY TREATMENT CYCLES OF INDUCTION THERAPY; (DAYS 1, 8, AND 15)
     Route: 042
  17. CARFILZOMIB [Suspect]
     Active Substance: CARFILZOMIB
     Indication: Plasma cell myeloma
     Dosage: UNK, AS CONSOLIDATION THERAPY
     Route: 065
  18. FAMOTIDINE [Suspect]
     Active Substance: FAMOTIDINE
     Indication: Anaphylactic shock
     Dosage: 80 MILLIGRAM, PREMEDICATION (ON DAYS OF DESENSITIZATION)
     Route: 065
  19. FAMOTIDINE [Suspect]
     Active Substance: FAMOTIDINE
     Indication: Prophylaxis
  20. MELPHALAN [Concomitant]
     Active Substance: MELPHALAN
     Indication: Plasma cell myeloma
     Dosage: UNK, HIGH DOSE, HERAPY COMPLETED. GIVEN BEFORE AUTOLOGOUS HEMATOPOIETIC STEM CELL TRANSPLANT (AHSCT)
     Route: 065
  21. CLEMASTINE [Concomitant]
     Active Substance: CLEMASTINE
     Indication: Anaphylactic shock
     Dosage: 2 MILLIGRAM, PREMEDICATION (ON DAYS OF DESENSITIZATION); ADDITIONAL CLEMASTINE AFTER ANAPHYLACTIC SH
     Route: 065
  22. CLEMASTINE [Concomitant]
     Active Substance: CLEMASTINE
     Indication: Anaphylactic shock
     Dosage: UNK, ADDITIONAL CLEMASTINE AFTER HYPERSENSITIVITY REACTIONS
     Route: 065
  23. CLEMASTINE [Concomitant]
     Active Substance: CLEMASTINE
     Indication: Prophylaxis

REACTIONS (1)
  - Drug ineffective [Unknown]
